FAERS Safety Report 8350666-9 (Version None)
Quarter: 2012Q2

REPORT INFORMATION
  Report Type: 
  Country: None (occurrence: None)
  Receive Date: 20120510
  Receipt Date: 20120426
  Transmission Date: 20120825
  Serious: Yes (Death, Life-Threatening, Hospitalization, Disabling, Other)
  Sender: FDA-Public Use
  Company Number: US-MYLANLABS-2009AC000442

PATIENT
  Sex: Male
  Weight: 90.72 kg

DRUGS (22)
  1. EXELON [Concomitant]
  2. COUMADIN [Concomitant]
  3. ASPIRIN [Concomitant]
  4. NAMENDA [Concomitant]
  5. CATAPRES [Concomitant]
  6. ALBUTEROL [Concomitant]
  7. DOXAZOSIN MESYLATE [Concomitant]
  8. TYLENOL (CAPLET) [Concomitant]
  9. MAXIPIME [Concomitant]
  10. METAMUCIL-2 [Concomitant]
  11. ALLOPURINOL [Concomitant]
  12. FOLIC ACID [Concomitant]
  13. LEVAQUIN [Concomitant]
  14. COZAAR [Concomitant]
  15. NORVASC [Concomitant]
  16. ROCEPHIN [Concomitant]
  17. FUROSEMIDE [Concomitant]
  18. SIMVASTATIN [Concomitant]
  19. VITAMIN B-12 [Concomitant]
  20. DIGOXIN [Suspect]
     Indication: ATRIAL FIBRILLATION
     Route: 048
     Dates: start: 20060908, end: 20080220
  21. ENALAPRIL MALEATE [Concomitant]
  22. KLONOPIN [Concomitant]

REACTIONS (91)
  - ILL-DEFINED DISORDER [None]
  - DEATH [None]
  - ATRIAL FIBRILLATION [None]
  - ILEUS [None]
  - METABOLIC ENCEPHALOPATHY [None]
  - DECREASED APPETITE [None]
  - NEUROLOGICAL EXAMINATION ABNORMAL [None]
  - RALES [None]
  - SKIN ULCER [None]
  - DYSPNOEA [None]
  - CONFUSIONAL STATE [None]
  - ASTHENIA [None]
  - BLINDNESS TRANSIENT [None]
  - BLOOD CREATININE INCREASED [None]
  - CSF WHITE BLOOD CELL COUNT POSITIVE [None]
  - CHEST X-RAY ABNORMAL [None]
  - GASTROINTESTINAL SOUNDS ABNORMAL [None]
  - LETHARGY [None]
  - LUMBAR PUNCTURE ABNORMAL [None]
  - LUNG INFILTRATION [None]
  - MALNUTRITION [None]
  - NERVOUS SYSTEM DISORDER [None]
  - NUCLEAR MAGNETIC RESONANCE IMAGING ABNORMAL [None]
  - PNEUMONIA [None]
  - PRODUCTIVE COUGH [None]
  - CARDIOMEGALY [None]
  - HEAD INJURY [None]
  - ECONOMIC PROBLEM [None]
  - MENTAL STATUS CHANGES [None]
  - DEMENTIA [None]
  - ATELECTASIS [None]
  - DEMENTIA ALZHEIMER'S TYPE [None]
  - PSEUDOMEMBRANOUS COLITIS [None]
  - CREPITATIONS [None]
  - GASTROINTESTINAL TUBE INSERTION [None]
  - HAEMORRHOIDS [None]
  - LEUKOCYTOSIS [None]
  - RENAL FAILURE CHRONIC [None]
  - ANEURYSM [None]
  - CANDIDURIA [None]
  - CHILLS [None]
  - DYSPHAGIA [None]
  - GYNAECOMASTIA [None]
  - HYPERTENSION [None]
  - CEREBELLAR ATROPHY [None]
  - NASAL CONGESTION [None]
  - SKIN LESION [None]
  - SPINAL OSTEOARTHRITIS [None]
  - COUGH [None]
  - FALL [None]
  - INJURY [None]
  - RENAL FAILURE [None]
  - PLEURAL EFFUSION [None]
  - ABDOMINAL PAIN [None]
  - ARTERIOSCLEROSIS [None]
  - CENTRAL VENOUS CATHETERISATION [None]
  - PLEOCYTOSIS [None]
  - PROSTATOMEGALY [None]
  - LACERATION [None]
  - HYDROCEPHALUS [None]
  - ELECTROENCEPHALOGRAM ABNORMAL [None]
  - HEADACHE [None]
  - LYMPHOEDEMA [None]
  - PROTEINURIA [None]
  - PYREXIA [None]
  - RHINORRHOEA [None]
  - TOOTH FRACTURE [None]
  - UPPER RESPIRATORY TRACT CONGESTION [None]
  - VITAMIN B12 DEFICIENCY [None]
  - ENCEPHALITIS [None]
  - CLOSTRIDIUM DIFFICILE COLITIS [None]
  - ENCEPHALOPATHY [None]
  - RESPIRATORY FAILURE [None]
  - PERICARDIAL EFFUSION [None]
  - ABDOMINAL DISTENSION [None]
  - COMPUTERISED TOMOGRAM ABNORMAL [None]
  - CONSTIPATION [None]
  - DYSLIPIDAEMIA [None]
  - HEART RATE IRREGULAR [None]
  - HYPOTENSION [None]
  - VENOUS INSUFFICIENCY [None]
  - CEREBRAL ISCHAEMIA [None]
  - TRANSIENT ISCHAEMIC ATTACK [None]
  - TYPE 2 DIABETES MELLITUS [None]
  - BACK PAIN [None]
  - BREATH SOUNDS ABNORMAL [None]
  - RESPIRATORY TRACT CONGESTION [None]
  - DIABETIC NEUROPATHY [None]
  - DISORIENTATION [None]
  - EPISTAXIS [None]
  - LUNG DISORDER [None]
